FAERS Safety Report 8985548 (Version 1)
Quarter: 2012Q4

REPORT INFORMATION
  Report Type: 
  Country: JP (occurrence: JP)
  Receive Date: 20121226
  Receipt Date: 20121226
  Transmission Date: 20130627
  Serious: Yes (Death)
  Sender: FDA-Public Use
  Company Number: JP-PFIZER INC-2012322179

PATIENT
  Age: 2 Year
  Sex: Female

DRUGS (1)
  1. GENOTROPIN TC [Suspect]
     Indication: RENAL FAILURE CHRONIC
     Dosage: 0.2 mg, 1x/day
     Dates: start: 20121003

REACTIONS (1)
  - Infection [Fatal]
